FAERS Safety Report 25188014 (Version 2)
Quarter: 2025Q2

REPORT INFORMATION
  Report Type: Spontaneous
  Country: US (occurrence: US)
  Receive Date: 20250411
  Receipt Date: 20250508
  Transmission Date: 20250716
  Serious: No
  Sender: KINIKSA PHARMACEUTICALS
  Company Number: US-Kiniksa Pharmaceuticals Ltd.-2025KPU000711

PATIENT
  Age: 48 Year
  Sex: Female

DRUGS (5)
  1. ARCALYST [Suspect]
     Active Substance: RILONACEPT
     Indication: Pericarditis
     Route: 058
     Dates: start: 2024, end: 2024
  2. ARCALYST [Suspect]
     Active Substance: RILONACEPT
     Indication: Pericarditis
     Dosage: 2 ML, QW
     Route: 058
     Dates: start: 202408
  3. MOUNJARO [Suspect]
     Active Substance: TIRZEPATIDE
     Indication: Diabetes mellitus
  4. REZDIFFRA [Concomitant]
     Active Substance: RESMETIROM
     Indication: Hepatic fibrosis
  5. STERILE WATER [Concomitant]
     Active Substance: WATER
     Indication: Product used for unknown indication

REACTIONS (20)
  - Pericarditis [Recovered/Resolved]
  - Infection [Unknown]
  - Autoimmune disorder [Unknown]
  - Pain [Not Recovered/Not Resolved]
  - Drug ineffective [Unknown]
  - Product quality issue [Unknown]
  - Neck pain [Not Recovered/Not Resolved]
  - Chest pain [Not Recovered/Not Resolved]
  - Crying [Not Recovered/Not Resolved]
  - Inappropriate schedule of product administration [Unknown]
  - Product communication issue [Unknown]
  - Product supply issue [Unknown]
  - Therapeutic response unexpected [Unknown]
  - Sleep disorder [Unknown]
  - Feeling abnormal [Unknown]
  - Neuralgia [Unknown]
  - Product dose omission issue [Unknown]
  - Malaise [Unknown]
  - Arthralgia [Not Recovered/Not Resolved]
  - Inappropriate schedule of product administration [Unknown]

NARRATIVE: CASE EVENT DATE: 20250101
